FAERS Safety Report 22259999 (Version 1)
Quarter: 2023Q2

REPORT INFORMATION
  Report Type: Spontaneous
  Country: SI (occurrence: SI)
  Receive Date: 20230427
  Receipt Date: 20230427
  Transmission Date: 20230721
  Serious: Yes (Hospitalization)
  Sender: FDA-Public Use
  Company Number: SI-GLAXOSMITHKLINE-SI2023EME059406

PATIENT

DRUGS (1)
  1. NUCALA [Suspect]
     Active Substance: MEPOLIZUMAB
     Indication: Asthma
     Dosage: 100 MG, Q4W (EVERY 4 WEEK)
     Route: 058
     Dates: start: 2018

REACTIONS (5)
  - Asthma [Unknown]
  - Drug ineffective [Unknown]
  - Wheezing [Unknown]
  - COVID-19 [Unknown]
  - Respiratory tract infection viral [Unknown]
